FAERS Safety Report 5014383-5 (Version None)
Quarter: 2006Q2

REPORT INFORMATION
  Report Type: 
  Country: None (occurrence: None)
  Receive Date: 20060525
  Receipt Date: 20060516
  Transmission Date: 20061013
  Serious: Yes (Hospitalization)
  Sender: FDA-Public Use
  Company Number: 2006-DE-02516GD

PATIENT
  Age: 17 Year
  Sex: Female

DRUGS (3)
  1. DIPYRONE (METAMIZOLE SODIUM) [Suspect]
     Indication: DYSMENORRHOEA
     Dosage: 4 G
  2. ACETAMINOPHEN [Suspect]
     Indication: DYSMENORRHOEA
     Dosage: 500 MG
  3. DICLOFENAC (DICLOFENAC) [Suspect]
     Indication: DYSMENORRHOEA
     Dosage: 75 MG

REACTIONS (4)
  - HYPERTENSION [None]
  - OEDEMA PERIPHERAL [None]
  - RENAL FAILURE ACUTE [None]
  - TACHYCARDIA [None]
